FAERS Safety Report 14653745 (Version 2)
Quarter: 2020Q3

REPORT INFORMATION
  Report Type: Spontaneous
  Country: US (occurrence: US)
  Receive Date: 20180319
  Receipt Date: 20200730
  Transmission Date: 20201102
  Serious: No
  Sender: FDA-Public Use
  Company Number: US-PFIZER INC-2018108505

PATIENT
  Age: 49 Year
  Sex: Female

DRUGS (1)
  1. XELJANZ XR [Suspect]
     Active Substance: TOFACITINIB CITRATE
     Indication: RHEUMATOID ARTHRITIS
     Dosage: 11 MG, UNK
     Dates: start: 20170715, end: 20200728

REACTIONS (6)
  - Anxiety [Unknown]
  - Dysphonia [Unknown]
  - Throat irritation [Unknown]
  - Food poisoning [Unknown]
  - Drug hypersensitivity [Unknown]
  - Drug ineffective [Unknown]

NARRATIVE: CASE EVENT DATE: 20180313
